FAERS Safety Report 8461139-7 (Version None)
Quarter: 2012Q2

REPORT INFORMATION
  Report Type: 
  Country: None (occurrence: None)
  Receive Date: 20120625
  Receipt Date: 20120618
  Transmission Date: 20120825
  Serious: No
  Sender: FDA-Public Use
  Company Number: US-PFIZER INC-2012147769

PATIENT
  Sex: Female

DRUGS (2)
  1. TARCEVA [Concomitant]
     Dosage: UNK
  2. XALKORI [Suspect]
     Dosage: UNK
     Dates: start: 20120612

REACTIONS (3)
  - VOMITING [None]
  - NAUSEA [None]
  - WEIGHT DECREASED [None]
